FAERS Safety Report 14986759 (Version 2)
Quarter: 2018Q3

REPORT INFORMATION
  Report Type: Report from Study
  Country: BE (occurrence: BE)
  Receive Date: 20180608
  Receipt Date: 20180801
  Transmission Date: 20181010
  Serious: Yes (Hospitalization, Other)
  Sender: FDA-Public Use
  Company Number: BE-TEVA-2018-BE-864449

PATIENT
  Age: 66 Year
  Sex: Female
  Weight: 84 kg

DRUGS (6)
  1. PANTOPRAZOLE [Suspect]
     Active Substance: PANTOPRAZOLE
     Indication: PROPHYLAXIS
     Dosage: 40 MILLIGRAM DAILY;
     Route: 048
     Dates: start: 2012, end: 20160921
  2. PARACETAMOL [Suspect]
     Active Substance: ACETAMINOPHEN
     Indication: HEADACHE
     Dosage: PRN
     Route: 048
     Dates: start: 2016, end: 20160921
  3. TRADONAL [Concomitant]
     Active Substance: TRAMADOL HYDROCHLORIDE
     Indication: ARTHRALGIA
     Dosage: PRN
     Route: 048
     Dates: start: 2012, end: 20160921
  4. PLACEBO SOLUTION FOR INJECTION [Suspect]
     Active Substance: UNSPECIFIED INGREDIENT
     Indication: TYPE 2 DIABETES MELLITUS
     Route: 058
     Dates: start: 20160802, end: 20160913
  5. DOCSIMVASTA [Suspect]
     Active Substance: SIMVASTATIN
     Indication: DYSLIPIDAEMIA
     Route: 048
     Dates: start: 2012, end: 20160921
  6. DOCSIMVASTA [Suspect]
     Active Substance: SIMVASTATIN
     Route: 065

REACTIONS (1)
  - Drug-induced liver injury [Recovered/Resolved]

NARRATIVE: CASE EVENT DATE: 20160915
